FAERS Safety Report 7159277-4 (Version None)
Quarter: 2010Q4

REPORT INFORMATION
  Report Type: 
  Country: None (occurrence: None)
  Receive Date: 20101214
  Receipt Date: 20100803
  Transmission Date: 20110411
  Serious: No
  Sender: FDA-Public Use
  Company Number: US-ASTRAZENECA-2010SE36318

PATIENT
  Sex: Female

DRUGS (4)
  1. CRESTOR [Suspect]
     Route: 048
     Dates: start: 20060101, end: 20090101
  2. CRESTOR [Suspect]
     Route: 048
     Dates: start: 20090101, end: 20100613
  3. LISINOPRIL [Concomitant]
  4. CENTRUM MVI [Concomitant]

REACTIONS (4)
  - BACK PAIN [None]
  - BLOOD CREATINE PHOSPHOKINASE INCREASED [None]
  - DYSPNOEA [None]
  - MYALGIA [None]
